FAERS Safety Report 6257079-4 (Version None)
Quarter: 2009Q3

REPORT INFORMATION
  Report Type: 
  Country: None (occurrence: None)
  Receive Date: 20090706
  Receipt Date: 20090629
  Transmission Date: 20100115
  Serious: Yes (Hospitalization)
  Sender: FDA-Public Use
  Company Number: B0571676A

PATIENT
  Sex: Female

DRUGS (3)
  1. FLOLAN [Suspect]
     Indication: PULMONARY ARTERIAL HYPERTENSION
     Route: 042
     Dates: start: 20061101
  2. OMEPRAL [Concomitant]
     Indication: PROPHYLAXIS
     Dosage: 20MG PER DAY
     Route: 048
     Dates: start: 20071029
  3. SLOW-K [Concomitant]
     Route: 048
     Dates: start: 20081109

REACTIONS (12)
  - CATHETER RELATED INFECTION [None]
  - COUGH [None]
  - DECREASED APPETITE [None]
  - DYSPNOEA [None]
  - DYSPNOEA EXERTIONAL [None]
  - NAUSEA [None]
  - PYREXIA [None]
  - RASH [None]
  - RIGHT VENTRICULAR FAILURE [None]
  - STAPHYLOCOCCAL INFECTION [None]
  - STRESS [None]
  - WEIGHT INCREASED [None]
